FAERS Safety Report 4399158-2 (Version None)
Quarter: 2004Q2

REPORT INFORMATION
  Report Type: 
  Country: None (occurrence: None)
  Receive Date: 20040621
  Receipt Date: 20040317
  Transmission Date: 20050107
  Serious: Yes (Other)
  Sender: FDA-Public Use
  Company Number: USA-2004-0013969

PATIENT
  Age: 74 Year
  Sex: Female

DRUGS (15)
  1. OXYCONTIN [Suspect]
     Indication: CANCER PAIN
     Dosage: 160 MG, Q12H, ORAL
     Route: 048
  2. OXYCODONE HCL [Suspect]
     Indication: CANCER PAIN
     Dosage: 30 MG, Q4H, ORAL
     Route: 048
  3. CLARITIN [Concomitant]
  4. CLONAZEPAM [Concomitant]
  5. COMBIVENT [Concomitant]
  6. COLACE [Concomitant]
  7. FERROUS SULFATE TAB [Concomitant]
  8. LASIX [Concomitant]
  9. KCL-RETARD [Concomitant]
  10. NEURONTIN [Concomitant]
  11. ZANTAC [Concomitant]
  12. SYNTHROID [Concomitant]
  13. COUMADIN [Concomitant]
  14. IBUPROFEN [Concomitant]
  15. NITROGLYCERIN ^SLOVAKOFARMA^ [Concomitant]

REACTIONS (1)
  - DRUG DEPENDENCE [None]
